FAERS Safety Report 15067691 (Version 1)
Quarter: 2018Q2

REPORT INFORMATION
  Report Type: Spontaneous
  Country: US (occurrence: US)
  Receive Date: 20180626
  Receipt Date: 20180626
  Transmission Date: 20180711
  Serious: No
  Sender: FDA-Public Use
  Company Number: US-ALLERGAN-1832064US

PATIENT
  Age: 19 Year
  Sex: Female

DRUGS (1)
  1. TAYTULLA [Suspect]
     Active Substance: ETHINYL ESTRADIOL\NORETHINDRONE ACETATE
     Indication: CONTRACEPTION
     Dosage: UNK, QD
     Route: 048

REACTIONS (4)
  - Drug ineffective [Unknown]
  - Pregnancy on oral contraceptive [Unknown]
  - Product use issue [Unknown]
  - Drug dose omission [Unknown]
